FAERS Safety Report 9321830 (Version 1)
Quarter: 2013Q2

REPORT INFORMATION
  Report Type: Spontaneous
  Country: US (occurrence: US)
  Receive Date: 20130531
  Receipt Date: 20130531
  Transmission Date: 20140414
  Serious: Yes (Hospitalization, Other)
  Sender: FDA-Public Use
  Company Number: US-ASTRAZENECA-2013SE36215

PATIENT
  Sex: Female

DRUGS (4)
  1. NEXIUM [Suspect]
     Route: 048
     Dates: start: 2012
  2. TAGAMET [Suspect]
     Route: 065
  3. ACIPHEX [Suspect]
     Route: 065
  4. ACIPHEX [Suspect]
     Route: 065

REACTIONS (9)
  - Pneumonia [Unknown]
  - Organising pneumonia [Unknown]
  - Chronic obstructive pulmonary disease [Unknown]
  - Weight decreased [Unknown]
  - Colitis ulcerative [Unknown]
  - Hiatus hernia [Unknown]
  - Lung disorder [Unknown]
  - Drug dose omission [Unknown]
  - Drug ineffective [Unknown]
